FAERS Safety Report 7619269-5 (Version None)
Quarter: 2011Q3

REPORT INFORMATION
  Report Type: 
  Country: None (occurrence: None)
  Receive Date: 20110718
  Receipt Date: 20110707
  Transmission Date: 20111222
  Serious: Yes (Other)
  Sender: FDA-Public Use
  Company Number: US-ASTRAZENECA-2011SE23417

PATIENT
  Age: 60 Year
  Sex: Female

DRUGS (11)
  1. ATENOLOL [Concomitant]
  2. LOPERAMIDE HYDROCHLORIDE [Concomitant]
  3. VITAMIN D [Concomitant]
  4. FASLODEX [Suspect]
     Indication: PRODUCT USED FOR UNKNOWN INDICATION
     Route: 030
     Dates: start: 20110309
  5. LAPATINIB [Suspect]
     Indication: PRODUCT USED FOR UNKNOWN INDICATION
     Route: 048
     Dates: start: 20110309
  6. OMEPRAZOLE [Concomitant]
  7. CARTIA XT [Concomitant]
  8. HYDROCHLOROTHIAZIDE [Concomitant]
  9. MULTI-VITAMIN [Concomitant]
  10. SIMVASTATIN [Concomitant]
  11. LAPATINIB [Suspect]
     Route: 048
     Dates: start: 20110331, end: 20110403

REACTIONS (14)
  - RASH GENERALISED [None]
  - ORAL MUCOSAL EXFOLIATION [None]
  - DECREASED APPETITE [None]
  - HEADACHE [None]
  - ABDOMINAL PAIN [None]
  - HYPERTENSION [None]
  - HYPERLIPIDAEMIA [None]
  - DIARRHOEA [None]
  - STOMATITIS [None]
  - NAUSEA [None]
  - ASTHENIA [None]
  - HAEMATOCHEZIA [None]
  - HYPOTENSION [None]
  - DEHYDRATION [None]
